FAERS Safety Report 8270421 (Version 2)
Quarter: 2012Q4

REPORT INFORMATION
  Report Type: 
  Country: DE (occurrence: DE)
  Receive Date: 20111201
  Receipt Date: 20121227
  Transmission Date: 20130627
  Serious: Yes (Other)
  Sender: FDA-Public Use
  Company Number: DE-CELGENEUS-062-21880-11112844

PATIENT

DRUGS (6)
  1. REVLIMID [Suspect]
     Indication: MULTIPLE MYELOMA
     Route: 048
  2. REVLIMID [Suspect]
     Route: 048
  3. REVLIMID [Suspect]
     Route: 048
  4. REVLIMID [Suspect]
     Route: 048
  5. REVLIMID [Suspect]
     Route: 048
  6. IMMUNOSUPPRESSIVES [Concomitant]
     Indication: DRUG USE FOR UNKNOWN INDICATION
     Route: 065

REACTIONS (7)
  - Fracture [Unknown]
  - Graft versus host disease [Unknown]
  - Arrhythmia [Unknown]
  - Mucosal inflammation [Unknown]
  - Hepatic enzyme increased [Unknown]
  - Plasma cell myeloma [Unknown]
  - Oedema [Unknown]
